FAERS Safety Report 4616252-9 (Version None)
Quarter: 2005Q1

REPORT INFORMATION
  Report Type: 
  Country: None (occurrence: None)
  Receive Date: 20050321
  Receipt Date: 20050311
  Transmission Date: 20050727
  Serious: Yes (Hospitalization)
  Sender: FDA-Public Use
  Company Number: SUS1-2005-00190

PATIENT
  Age: 6 Year
  Sex: Female

DRUGS (1)
  1. ADDERALL 10 [Suspect]
     Dates: start: 20030101

REACTIONS (2)
  - DROOLING [None]
  - POSTURE ABNORMAL [None]
